FAERS Safety Report 4482958-8 (Version None)
Quarter: 2004Q4

REPORT INFORMATION
  Report Type: 
  Country: None (occurrence: None)
  Receive Date: 20041022
  Receipt Date: 20041015
  Transmission Date: 20050328
  Serious: Yes (Hospitalization)
  Sender: FDA-Public Use
  Company Number: US-MERCK-0410USA02369

PATIENT
  Age: 55 Year
  Sex: Female

DRUGS (17)
  1. VIOXX [Suspect]
     Indication: ARTHRITIS
     Route: 048
     Dates: end: 20020101
  2. SINGULAIR [Concomitant]
     Route: 065
  3. ISOSORBIDE [Concomitant]
     Route: 065
  4. PRINIVIL [Concomitant]
     Route: 065
  5. PROZAC [Concomitant]
     Route: 065
  6. FUROSEMIDE [Concomitant]
     Route: 065
  7. ALPRAZOLAM [Concomitant]
     Route: 065
  8. SKELAXIN [Concomitant]
     Route: 065
  9. PLAVIX [Concomitant]
     Route: 065
  10. HUMULIN [Concomitant]
     Route: 065
  11. ASPIRIN [Concomitant]
     Route: 065
  12. TOPROL-XL [Concomitant]
     Route: 065
  13. LIPITOR [Concomitant]
     Route: 065
  14. AMARYL [Concomitant]
     Route: 065
  15. NEXIUM [Concomitant]
     Route: 065
  16. NITROLINGUAL [Concomitant]
     Route: 065
  17. COMBIVENT [Concomitant]
     Route: 065

REACTIONS (2)
  - ARTERIAL OCCLUSIVE DISEASE [None]
  - MYOCARDIAL INFARCTION [None]
